FAERS Safety Report 7478196-7 (Version None)
Quarter: 2011Q2

REPORT INFORMATION
  Report Type: 
  Country: None (occurrence: None)
  Receive Date: 20110506
  Receipt Date: 20110420
  Transmission Date: 20111010
  Serious: Yes (Other)
  Sender: FDA-Public Use
  Company Number: JPI-P-014682

PATIENT
  Age: 32 Year
  Sex: Male
  Weight: 72.5755 kg

DRUGS (7)
  1. XYREM [Suspect]
     Indication: SOMNOLENCE
     Dosage: ORAL 7.5 GM (3.75 GM, 2 IN 1 D), ORAL
     Route: 048
     Dates: start: 20110208, end: 20110101
  2. XYREM [Suspect]
     Indication: NARCOLEPSY
     Dosage: ORAL 7.5 GM (3.75 GM, 2 IN 1 D), ORAL
     Route: 048
     Dates: start: 20110208, end: 20110101
  3. XYREM [Suspect]
     Indication: SOMNOLENCE
     Dosage: ORAL 7.5 GM (3.75 GM, 2 IN 1 D), ORAL
     Route: 048
     Dates: start: 20110101
  4. XYREM [Suspect]
     Indication: NARCOLEPSY
     Dosage: ORAL 7.5 GM (3.75 GM, 2 IN 1 D), ORAL
     Route: 048
     Dates: start: 20110101
  5. IBUPROFEN [Concomitant]
  6. ACETAMINOPHEN [Concomitant]
  7. OXYCODONE AND ACETAMINOPHEN [Concomitant]

REACTIONS (5)
  - LIGAMENT RUPTURE [None]
  - FALL [None]
  - PERIPHERAL COLDNESS [None]
  - CONDITION AGGRAVATED [None]
  - ARTHRALGIA [None]
